FAERS Safety Report 5993497-7 (Version None)
Quarter: 2008Q4

REPORT INFORMATION
  Report Type: 
  Country: None (occurrence: None)
  Receive Date: 20081212
  Receipt Date: 20081208
  Transmission Date: 20090506
  Serious: Yes (Life-Threatening, Other)
  Sender: FDA-Public Use
  Company Number: US-BAYER-200840269NA

PATIENT
  Sex: Female

DRUGS (2)
  1. MIRENA [Suspect]
     Indication: CONTRACEPTION
     Route: 015
     Dates: start: 20081124, end: 20081126
  2. ANTIBIOTICS [Concomitant]
     Indication: INFLUENZA LIKE ILLNESS
     Dates: start: 20081126

REACTIONS (2)
  - INFLUENZA LIKE ILLNESS [None]
  - SEPTIC SHOCK [None]
